FAERS Safety Report 7365901-3 (Version None)
Quarter: 2011Q1

REPORT INFORMATION
  Report Type: 
  Country: None (occurrence: None)
  Receive Date: 20110322
  Receipt Date: 20110308
  Transmission Date: 20110831
  Serious: Yes (Hospitalization)
  Sender: FDA-Public Use
  Company Number: US-JNJFOC-20061201312

PATIENT
  Sex: Female

DRUGS (3)
  1. METHOTREXATE [Concomitant]
     Indication: COLITIS
  2. INFLIXIMAB [Suspect]
     Indication: COLITIS
     Route: 042
  3. INFLIXIMAB [Suspect]
     Route: 042

REACTIONS (1)
  - COLITIS [None]
